FAERS Safety Report 8029568-3 (Version None)
Quarter: 2012Q1

REPORT INFORMATION
  Report Type: 
  Country: None (occurrence: None)
  Receive Date: 20120109
  Receipt Date: 20120105
  Transmission Date: 20120608
  Serious: No
  Sender: FDA-Public Use
  Company Number: US-PFIZER INC-2012003890

PATIENT
  Sex: Female
  Weight: 63.5 kg

DRUGS (2)
  1. LIPITOR [Suspect]
     Indication: BLOOD CHOLESTEROL INCREASED
     Dosage: UNK, 1X/DAY
     Route: 048
     Dates: start: 20120103, end: 20120104
  2. LIPITOR [Suspect]
     Dosage: UNK
     Route: 048
     Dates: end: 20120104

REACTIONS (2)
  - SKIN REACTION [None]
  - HYPERSENSITIVITY [None]
